FAERS Safety Report 6372242-X (Version None)
Quarter: 2009Q3

REPORT INFORMATION
  Report Type: 
  Country: None (occurrence: None)
  Receive Date: 20090924
  Receipt Date: 20090917
  Transmission Date: 20100115
  Serious: Yes (Hospitalization)
  Sender: FDA-Public Use
  Company Number: US-BIOGENIDEC-2008BI031244

PATIENT
  Age: 63 Year
  Sex: Female

DRUGS (3)
  1. AVONEX [Suspect]
     Indication: MULTIPLE SCLEROSIS
     Route: 030
     Dates: start: 20031201, end: 20050301
  2. AVONEX [Suspect]
     Route: 030
     Dates: start: 20060817, end: 20090201
  3. AVONEX [Suspect]
     Route: 030
     Dates: start: 20090401

REACTIONS (5)
  - ABDOMINAL HERNIA [None]
  - COLLAPSE OF LUNG [None]
  - FALL [None]
  - POSTOPERATIVE WOUND INFECTION [None]
  - SPINAL COMPRESSION FRACTURE [None]
